FAERS Safety Report 6126603-4 (Version None)
Quarter: 2009Q1

REPORT INFORMATION
  Report Type: 
  Country: None (occurrence: None)
  Receive Date: 20090320
  Receipt Date: 20090311
  Transmission Date: 20090719
  Serious: Yes (Hospitalization)
  Sender: FDA-Public Use
  Company Number: DE-WYE-H08575909

PATIENT
  Age: 19 Year
  Sex: Male
  Weight: 78 kg

DRUGS (5)
  1. PANTOZOL [Suspect]
     Indication: REFLUX OESOPHAGITIS
     Route: 048
     Dates: start: 20010101, end: 20081210
  2. RANITIDINE [Suspect]
     Indication: REFLUX OESOPHAGITIS
     Route: 048
     Dates: start: 20010101, end: 20081210
  3. LAMOTRIGINE [Suspect]
     Indication: EPILEPSY
     Route: 048
     Dates: start: 20081110, end: 20081210
  4. IBUPROFEN TABLETS [Suspect]
     Indication: MIGRAINE
     Dosage: 400 MG AS REQUIRED
     Route: 048
     Dates: start: 20081101, end: 20081208
  5. ERGENYL CHRONO [Suspect]
     Indication: EPILEPSY
     Route: 048
     Dates: start: 20070501

REACTIONS (6)
  - GAMMA-GLUTAMYLTRANSFERASE INCREASED [None]
  - INFLAMMATION [None]
  - MYCOPLASMA INFECTION [None]
  - PYREXIA [None]
  - RASH [None]
  - TRANSAMINASES INCREASED [None]
